FAERS Safety Report 12325389 (Version 3)
Quarter: 2016Q3

REPORT INFORMATION
  Report Type: Spontaneous
  Country: US (occurrence: US)
  Receive Date: 20160502
  Receipt Date: 20160726
  Transmission Date: 20161109
  Serious: Yes (Hospitalization, Other)
  Sender: FDA-Public Use
  Company Number: US-009507513-1604USA018026

PATIENT
  Age: 72 Year
  Sex: Female
  Weight: 79 kg

DRUGS (1)
  1. KEYTRUDA [Suspect]
     Active Substance: PEMBROLIZUMAB
     Indication: MALIGNANT MELANOMA
     Dosage: 160 MG, EVERY 21 DAYS
     Route: 042
     Dates: start: 20151117, end: 20160314

REACTIONS (4)
  - Pancreatitis [Recovered/Resolved]
  - Amylase increased [Unknown]
  - Cholelithiasis [Recovered/Resolved]
  - Lipase increased [Unknown]

NARRATIVE: CASE EVENT DATE: 201603
